FAERS Safety Report 9164120 (Version 3)
Quarter: 2013Q2

REPORT INFORMATION
  Report Type: Spontaneous
  Country: US (occurrence: US)
  Receive Date: 20130315
  Receipt Date: 20130415
  Transmission Date: 20140414
  Serious: Yes (Other)
  Sender: FDA-Public Use
  Company Number: US-AMGEN-USASP2013017126

PATIENT
  Age: 31 Year
  Sex: Female
  Weight: 71 kg

DRUGS (13)
  1. EPOGEN [Suspect]
     Indication: NEPHROGENIC ANAEMIA
     Dosage: 30000 UNIT, 3 TIMES/WK
     Route: 040
     Dates: start: 20120327
  2. SENSIPAR [Concomitant]
     Indication: HYPERPARATHYROIDISM SECONDARY
     Dosage: 30 MG, QD
     Dates: start: 20120918
  3. CALCITRIOL [Concomitant]
     Dosage: UNK
     Dates: start: 20130221
  4. HEPARIN [Concomitant]
     Dosage: 1 ML PER HR IV PUMP 2000 UNITS X 2 HOURS
     Route: 042
     Dates: start: 20130124
  5. TYLENOL /00020001/ [Concomitant]
     Indication: PAIN
     Dosage: 325 MG, EVERY 4-6 HRS
     Route: 048
     Dates: start: 20120519
  6. VITAMIN D3 [Concomitant]
     Dosage: 50000 EACH THR EVERY 4 WEEKS
     Route: 048
     Dates: start: 20130103
  7. TYLENOL WITH CODEINE [Concomitant]
     Indication: PAIN
     Dosage: EVERY 6 HRS PRN
     Route: 048
     Dates: start: 20121220
  8. ZOFRAN                             /00955301/ [Concomitant]
     Indication: NAUSEA
     Dosage: 4 MG, EVERY 8 HRS
     Route: 048
     Dates: start: 20121211
  9. ACIDOPHILUS [Concomitant]
     Dosage: 1 TABLETS , QD
     Route: 048
     Dates: start: 20130307
  10. DIALYVITE WITH ZINC [Concomitant]
     Dosage: 1 TABLETS, DAILY
     Route: 048
     Dates: start: 20130308
  11. ETHYL CHLORIDE [Concomitant]
     Dosage: UNK
     Route: 061
     Dates: start: 20120830
  12. RENVELA [Concomitant]
     Dosage: 1 TABLETS WITH EACH MEAL
     Route: 048
     Dates: start: 20130307
  13. VITAMIN B12                        /00056201/ [Concomitant]
     Dosage: 1000 MUG, QD
     Route: 048
     Dates: start: 20120621

REACTIONS (2)
  - Anaemia [Not Recovered/Not Resolved]
  - Aplasia pure red cell [Unknown]
